FAERS Safety Report 4311429-4 (Version None)
Quarter: 2004Q1

REPORT INFORMATION
  Report Type: 
  Country: None (occurrence: None)
  Receive Date: 20040303
  Receipt Date: 20040303
  Transmission Date: 20041129
  Serious: Yes (Hospitalization)
  Sender: FDA-Public Use
  Company Number: None

PATIENT
  Age: 28 Year

DRUGS (1)
  1. REMICADE [Suspect]
     Indication: CROHN'S DISEASE
     Dosage: 300MG/250ML NS
     Dates: start: 20021122

REACTIONS (5)
  - DYSPNOEA [None]
  - FLUSHING [None]
  - NAUSEA [None]
  - SYNCOPE [None]
  - URTICARIA [None]
